FAERS Safety Report 6348813-3 (Version None)
Quarter: 2009Q3

REPORT INFORMATION
  Report Type: 
  Country: None (occurrence: None)
  Receive Date: 20090911
  Receipt Date: 20090901
  Transmission Date: 20100115
  Serious: Yes (Hospitalization)
  Sender: FDA-Public Use
  Company Number: JP-AMGEN-US363556

PATIENT
  Age: 82 Year
  Sex: Female

DRUGS (3)
  1. ENBREL [Suspect]
     Indication: RHEUMATOID ARTHRITIS
     Route: 058
     Dates: start: 20090117, end: 20090803
  2. PREDONINE [Concomitant]
     Route: 048
     Dates: start: 20081114, end: 20090809
  3. RHEUMATREX [Concomitant]
     Route: 048
     Dates: start: 20081114, end: 20090809

REACTIONS (3)
  - CARDIAC FAILURE ACUTE [None]
  - MALAISE [None]
  - PLEURAL EFFUSION [None]
